FAERS Safety Report 12570513 (Version 2)
Quarter: 2016Q3

REPORT INFORMATION
  Report Type: Spontaneous
  Country: HU (occurrence: HU)
  Receive Date: 20160719
  Receipt Date: 20160811
  Transmission Date: 20161109
  Serious: Yes (Other)
  Sender: FDA-Public Use
  Company Number: HU-PFIZER INC-2016345723

PATIENT
  Age: 59 Year
  Sex: Female

DRUGS (6)
  1. TENSIOMIN [Concomitant]
     Active Substance: CAPTOPRIL
     Dosage: 25 MG, AS NEEDED, STARTED A LONG TIME AGO
  2. NEBIVOLOL. [Concomitant]
     Active Substance: NEBIVOLOL
     Dosage: 1 DF, 1X/DAY, STARTED A LONG TIME AGO
  3. XANAX [Suspect]
     Active Substance: ALPRAZOLAM
     Indication: PANIC DISORDER
     Dosage: 0.5 MG, 3X/DAY
     Dates: start: 201509
  4. EBRANTIL [Concomitant]
     Active Substance: URAPIDIL
     Dosage: 1 DF, 3X/DAY, STARTED A LONG TIME AGO
  5. LAPIDEN [Concomitant]
     Dosage: 1.5 MG, 1X/DAY, STARTED A LONG TIME AGO
  6. LECALPIN [Concomitant]
     Dosage: 20 MG, DAILY 2X 1/2 TABLET, STARTED LONG TIME AGO

REACTIONS (9)
  - Eye disorder [Not Recovered/Not Resolved]
  - Presbyopia [Not Recovered/Not Resolved]
  - Visual acuity reduced [Not Recovered/Not Resolved]
  - Photophobia [Not Recovered/Not Resolved]
  - Hypermetropia [Not Recovered/Not Resolved]
  - Blepharitis [Recovering/Resolving]
  - Lenticular opacities [Not Recovered/Not Resolved]
  - Eyelid pain [Recovering/Resolving]
  - Astigmatism [Not Recovered/Not Resolved]

NARRATIVE: CASE EVENT DATE: 201602
